FAERS Safety Report 12075583 (Version 1)
Quarter: 2016Q1

REPORT INFORMATION
  Report Type: Spontaneous
  Country: FR (occurrence: FR)
  Receive Date: 20160213
  Receipt Date: 20160213
  Transmission Date: 20160526
  Serious: Yes (Other)
  Sender: FDA-Public Use
  Company Number: FR-009507513-1602FRA005870

PATIENT
  Sex: Male
  Weight: 110 kg

DRUGS (1)
  1. CANCIDAS [Suspect]
     Active Substance: CASPOFUNGIN ACETATE
     Indication: CANDIDA INFECTION
     Dosage: 70 MG FOR LESS THAT A WEEK

REACTIONS (2)
  - Hepatic failure [Unknown]
  - Organ failure [Unknown]

NARRATIVE: CASE EVENT DATE: 201602
